FAERS Safety Report 10016405 (Version 1)
Quarter: 2014Q1

REPORT INFORMATION
  Report Type: Spontaneous
  Country: US (occurrence: US)
  Receive Date: 20140317
  Receipt Date: 20140317
  Transmission Date: 20141002
  Serious: Yes (Other)
  Sender: FDA-Public Use
  Company Number: US-PFIZER INC-2014072257

PATIENT
  Age: 44 Year
  Sex: Female
  Weight: 49.89 kg

DRUGS (1)
  1. VENLAFAXINE HCL [Suspect]
     Indication: DEPRESSION
     Dosage: 75 MG, DAILY
     Route: 048

REACTIONS (6)
  - Cerebrovascular accident [Unknown]
  - Palpitations [Recovered/Resolved]
  - Headache [Recovered/Resolved]
  - Tinnitus [Recovered/Resolved]
  - Dizziness [Recovered/Resolved]
  - Anxiety [Unknown]
